FAERS Safety Report 14311424 (Version 1)
Quarter: 2017Q4

REPORT INFORMATION
  Report Type: Spontaneous
  Country: US (occurrence: US)
  Receive Date: 20171221
  Receipt Date: 20171221
  Transmission Date: 20180321
  Serious: No
  Sender: FDA-Public Use
  Company Number: US-NOVEN PHARMACEUTICALS, INC.-US2017001163

PATIENT
  Sex: Female

DRUGS (6)
  1. MULTIVITAMIN [Concomitant]
     Active Substance: VITAMINS
     Dosage: 1 CAPSULE, QD
     Route: 048
  2. VITAMIN D3 [Concomitant]
     Active Substance: CHOLECALCIFEROL
     Dosage: 2 TABS, QD
     Route: 048
  3. PROGESTERONE;TESTOSTERONE [Concomitant]
     Dosage: 1/2 ML, 2 TIME A DAY
     Route: 061
     Dates: end: 20170405
  4. MINIVELLE [Suspect]
     Active Substance: ESTRADIOL
     Indication: PRODUCT USED FOR UNKNOWN INDICATION
     Dosage: UNK, UNKNOWN
     Route: 062
  5. PREMARIN [Concomitant]
     Active Substance: ESTROGENS, CONJUGATED
     Dosage: 0.625 MG/G 1G TO BE APPLIED 3 TIMES PER WEEK AT BEDTIME
     Route: 067
  6. ESTRADIOL. [Concomitant]
     Active Substance: ESTRADIOL
     Dosage: 1 MG, QD
     Route: 048

REACTIONS (1)
  - Rash [Unknown]
